FAERS Safety Report 21217620 (Version 1)
Quarter: 2022Q3

REPORT INFORMATION
  Report Type: Spontaneous
  Country: US (occurrence: US)
  Receive Date: 20220816
  Receipt Date: 20220816
  Transmission Date: 20221026
  Serious: Yes (Other)
  Sender: FDA-Public Use
  Company Number: US-ORGANON-O2208USA001271

PATIENT
  Age: 51 Year
  Sex: Female

DRUGS (1)
  1. NEXPLANON [Suspect]
     Active Substance: ETONOGESTREL
     Dosage: 1 IMPLANT
     Route: 059
     Dates: start: 20220810

REACTIONS (3)
  - Device expulsion [Not Recovered/Not Resolved]
  - Implant site discharge [Unknown]
  - Implant site pain [Unknown]

NARRATIVE: CASE EVENT DATE: 20220810
